FAERS Safety Report 9178777 (Version 2)
Quarter: 2014Q2

REPORT INFORMATION
  Report Type: Spontaneous
  Country: US (occurrence: US)
  Receive Date: 20121029
  Receipt Date: 20140421
  Transmission Date: 20141212
  Serious: Yes (Hospitalization, Disabling, Other)
  Sender: FDA-Public Use
  Company Number: US-009507513-1210USA009568

PATIENT
  Sex: Female

DRUGS (7)
  1. FOSAMAX [Suspect]
     Indication: OSTEOPOROSIS
     Dosage: 70 MG, UNK
     Route: 048
     Dates: start: 20070715, end: 20080512
  2. FOSAMAX [Suspect]
     Indication: OSTEOPENIA
  3. ALENDRONATE SODIUM [Suspect]
     Indication: OSTEOPOROSIS
     Dosage: 70 MG, UNK
     Route: 048
     Dates: start: 20080512, end: 201105
  4. ALENDRONATE SODIUM [Suspect]
     Indication: OSTEOPENIA
  5. CALCIUM CITRATE [Concomitant]
     Dosage: 500 MG, QD
     Dates: start: 1998
  6. VITAMIN D (UNSPECIFIED) [Concomitant]
     Dosage: 2000 IU, QD
     Dates: start: 1998
  7. SINGULAIR [Concomitant]
     Indication: ASTHMA
     Dosage: UNK
     Route: 048
     Dates: start: 1995

REACTIONS (11)
  - Femur fracture [Unknown]
  - Open reduction of fracture [Unknown]
  - Bone graft [Unknown]
  - Rotator cuff repair [Unknown]
  - Fracture nonunion [Unknown]
  - Device failure [Unknown]
  - Low turnover osteopathy [Unknown]
  - Vitamin D deficiency [Unknown]
  - Calcium deficiency [Unknown]
  - Breast operation [Unknown]
  - Gastrooesophageal reflux disease [Unknown]
